FAERS Safety Report 10578701 (Version 1)
Quarter: 2014Q4

REPORT INFORMATION
  Report Type: Spontaneous
  Country: US (occurrence: US)
  Receive Date: 20141112
  Receipt Date: 20141112
  Transmission Date: 20150529
  Serious: No
  Sender: FDA-Public Use
  Company Number: US-ENDO PHARMACEUTICALS INC.-ALPR20140013

PATIENT
  Age: 43 Year
  Sex: Male

DRUGS (3)
  1. BUPROPION [Concomitant]
     Active Substance: BUPROPION
  2. DOXEPIN [Concomitant]
     Active Substance: DOXEPIN
  3. ALPRAZOLAM TABLETS 1 MG [Suspect]
     Active Substance: ALPRAZOLAM
     Indication: ANXIETY
     Dates: start: 20140117, end: 20140117

REACTIONS (2)
  - Syncope [Recovered/Resolved]
  - Drug ineffective [Recovered/Resolved]

NARRATIVE: CASE EVENT DATE: 20140117
